FAERS Safety Report 19124103 (Version 1)
Quarter: 2021Q2

REPORT INFORMATION
  Report Type: Spontaneous
  Country: GB (occurrence: GB)
  Receive Date: 20210413
  Receipt Date: 20210413
  Transmission Date: 20210717
  Serious: Yes (Other)
  Sender: FDA-Public Use
  Company Number: GB-ROCHE-2803463

PATIENT
  Age: 56 Year
  Sex: Female
  Weight: 115 kg

DRUGS (19)
  1. LANSOPRAZOLE. [Concomitant]
     Active Substance: LANSOPRAZOLE
  2. AVAMYS [Concomitant]
     Active Substance: FLUTICASONE FUROATE
  3. EVENING PRIMROSE OIL [Concomitant]
     Active Substance: EVENING PRIMROSE OIL\HERBALS
  4. NAPROXEN. [Concomitant]
     Active Substance: NAPROXEN
  5. NOVORAPID [Concomitant]
     Active Substance: INSULIN ASPART
  6. TOPIRAMATE. [Concomitant]
     Active Substance: TOPIRAMATE
  7. DIHYDROCODEINE HYDROCHLORIDE. [Concomitant]
     Active Substance: DIHYDROCODEINE HYDROCHLORIDE
  8. FORXIGA [Concomitant]
     Active Substance: DAPAGLIFLOZIN
  9. IRBESARTAN. [Concomitant]
     Active Substance: IRBESARTAN
  10. GLICLAZIDE [Concomitant]
     Active Substance: GLICLAZIDE
  11. INDAPAMIDE. [Concomitant]
     Active Substance: INDAPAMIDE
  12. METFORMIN [Concomitant]
     Active Substance: METFORMIN HYDROCHLORIDE
  13. GABAPENTIN. [Concomitant]
     Active Substance: GABAPENTIN
  14. AMITRIPTYLINE [Concomitant]
     Active Substance: AMITRIPTYLINE
  15. BACLOFEN. [Concomitant]
     Active Substance: BACLOFEN
  16. MAGNESIUM OXIDE. [Concomitant]
     Active Substance: MAGNESIUM OXIDE
  17. OCRELIZUMAB. [Suspect]
     Active Substance: OCRELIZUMAB
     Indication: MULTIPLE SCLEROSIS
     Route: 051
     Dates: start: 20201026
  18. BUPRENORPHINE. [Concomitant]
     Active Substance: BUPRENORPHINE
  19. FERROUS FUMARATE [Concomitant]
     Active Substance: FERROUS FUMARATE

REACTIONS (3)
  - Headache [Recovered/Resolved]
  - Flushing [Not Recovered/Not Resolved]
  - Diabetes mellitus inadequate control [Not Recovered/Not Resolved]

NARRATIVE: CASE EVENT DATE: 20201026
